FAERS Safety Report 8496099-6 (Version None)
Quarter: 2012Q3

REPORT INFORMATION
  Report Type: 
  Country: None (occurrence: None)
  Receive Date: 20120709
  Receipt Date: 20120702
  Transmission Date: 20120928
  Serious: Yes (Hospitalization)
  Sender: FDA-Public Use
  Company Number: NL-EISAI INC-E3810-05655-SPO-NL

PATIENT
  Age: 62 Year
  Sex: Male

DRUGS (1)
  1. RABEPRAZOLE SODIUM [Suspect]
     Indication: PEPTIC ULCER
     Dosage: UNKNOWN
     Route: 048

REACTIONS (1)
  - PNEUMONIA [None]
